FAERS Safety Report 20012838 (Version 2)
Quarter: 2022Q3

REPORT INFORMATION
  Report Type: Spontaneous
  Country: US (occurrence: US)
  Receive Date: 20211029
  Receipt Date: 20220909
  Transmission Date: 20221027
  Serious: Yes (Death, Other)
  Sender: FDA-Public Use
  Company Number: US-TAKEDA-2021TUS065182

PATIENT
  Age: 74 Year
  Sex: Male

DRUGS (2)
  1. NINLARO [Suspect]
     Active Substance: IXAZOMIB CITRATE
     Indication: Product used for unknown indication
     Dosage: 4 MILLIGRAM
     Route: 048
     Dates: start: 202108
  2. NINLARO [Suspect]
     Active Substance: IXAZOMIB CITRATE
     Dosage: 3 MILLIGRAM, QD
     Route: 048

REACTIONS (2)
  - Death [Fatal]
  - Rash [Unknown]

NARRATIVE: CASE EVENT DATE: 20211016
